FAERS Safety Report 6850382-6 (Version None)
Quarter: 2010Q3

REPORT INFORMATION
  Report Type: 
  Country: None (occurrence: None)
  Receive Date: 20100716
  Receipt Date: 20071016
  Transmission Date: 20110219
  Serious: No
  Sender: FDA-Public Use
  Company Number: US-PFIZER INC-2007088635

PATIENT
  Age: 24 Year
  Sex: Female
  Weight: 87.7 kg

DRUGS (1)
  1. CHANTIX [Suspect]
     Dates: start: 20071016

REACTIONS (1)
  - NAUSEA [None]
